FAERS Safety Report 21917029 (Version 1)
Quarter: 2023Q1

REPORT INFORMATION
  Report Type: Spontaneous
  Country: None (occurrence: US)
  Receive Date: 20230126
  Receipt Date: 20230126
  Transmission Date: 20230418
  Serious: Yes (Hospitalization)
  Sender: FDA-Public Use
  Company Number: US-Jiangsu Hengrui Medicine Co., Ltd.-2137062

PATIENT
  Sex: Male

DRUGS (4)
  1. DOCETAXEL [Suspect]
     Active Substance: DOCETAXEL
     Indication: Transitional cell carcinoma
     Route: 041
  2. DARUNAVIR [Concomitant]
     Active Substance: DARUNAVIR
  3. RALTEGRAVIR [Concomitant]
     Active Substance: RALTEGRAVIR
  4. RITONAVIR [Concomitant]
     Active Substance: RITONAVIR

REACTIONS (7)
  - Pancytopenia [Recovered/Resolved]
  - Candida infection [Recovered/Resolved]
  - Mucosal inflammation [Recovered/Resolved]
  - Colitis [Recovered/Resolved]
  - Product use in unapproved indication [Unknown]
  - Drug interaction [Unknown]
  - Neoplasm progression [Unknown]
